FAERS Safety Report 13372355 (Version 1)
Quarter: 2017Q1

REPORT INFORMATION
  Report Type: Spontaneous
  Country: US (occurrence: US)
  Receive Date: 20170324
  Receipt Date: 20170324
  Transmission Date: 20170429
  Serious: No
  Sender: FDA-Public Use
  Company Number: None

PATIENT
  Age: 61 Year
  Sex: Male

DRUGS (1)
  1. SUTENT [Suspect]
     Active Substance: SUNITINIB MALATE

REACTIONS (6)
  - Decreased appetite [None]
  - Anaemia [None]
  - Hypertension [None]
  - Neutropenia [None]
  - Hypothyroidism [None]
  - Diarrhoea [None]

NARRATIVE: CASE EVENT DATE: 20170324
